FAERS Safety Report 23186412 (Version 2)
Quarter: 2023Q4

REPORT INFORMATION
  Report Type: Spontaneous
  Country: PK (occurrence: PK)
  Receive Date: 20231115
  Receipt Date: 20231121
  Transmission Date: 20240109
  Serious: Yes (Other)
  Sender: FDA-Public Use
  Company Number: PK-PFIZER INC-PV202200101077

PATIENT
  Age: 46 Year
  Sex: Male

DRUGS (13)
  1. ENBREL [Suspect]
     Active Substance: ETANERCEPT
     Indication: Ankylosing spondylitis
     Dosage: UNK, EVERY 3 WEEKS
     Route: 065
     Dates: start: 2021
  2. ENBREL [Suspect]
     Active Substance: ETANERCEPT
     Dosage: 50 MG, EVERY 4 WEEKS
     Route: 058
     Dates: start: 20221208
  3. METHOTREXATE SODIUM [Suspect]
     Active Substance: METHOTREXATE SODIUM
     Indication: Product used for unknown indication
     Dosage: UNK
     Route: 065
  4. FEBUXOSTAT [Suspect]
     Active Substance: FEBUXOSTAT
     Indication: Blood uric acid increased
     Dosage: UNK, (50MG) 0+0+1
     Route: 065
  5. FEBUXOSTAT [Suspect]
     Active Substance: FEBUXOSTAT
     Dosage: UNK (40MG) 0+0+1
     Route: 065
  6. SULFASALAZINE [Suspect]
     Active Substance: SULFASALAZINE
     Indication: Product used for unknown indication
     Dosage: UNK
     Route: 065
  7. D MAX [Concomitant]
     Indication: Product used for unknown indication
     Dosage: (2000) 0+0+1, AFTER FOOD
  8. MINERALS\VITAMINS [Concomitant]
     Active Substance: MINERALS\VITAMINS
     Indication: Product used for unknown indication
     Dosage: 1+0+0
  9. FENOGET [Concomitant]
     Indication: Product used for unknown indication
     Dosage: (200MG) 0+0+1
  10. DEXXOO [Concomitant]
     Indication: Product used for unknown indication
     Dosage: (30MG) 1+0+0
  11. ESCITALOPRAM OXALATE [Concomitant]
     Active Substance: ESCITALOPRAM OXALATE
     Indication: Product used for unknown indication
     Dosage: (10MG) 1+0+0
  12. ALPRAZOLAM [Concomitant]
     Active Substance: ALPRAZOLAM
     Indication: Product used for unknown indication
     Dosage: (0.5MG) 0+0+1
  13. MINERALS\VITAMINS [Concomitant]
     Active Substance: MINERALS\VITAMINS
     Indication: Product used for unknown indication
     Dosage: 1+0+0
     Route: 065

REACTIONS (12)
  - Polyarthritis [Unknown]
  - Blood thyroid stimulating hormone increased [Unknown]
  - Blood creatine increased [Unknown]
  - Blood triglycerides increased [Unknown]
  - Back pain [Recovered/Resolved]
  - Dizziness [Unknown]
  - Insomnia [Unknown]
  - Metabolic disorder [Unknown]
  - Hepatic steatosis [Unknown]
  - Glucose tolerance impaired [Unknown]
  - Blood pressure increased [Unknown]
  - Off label use [Unknown]

NARRATIVE: CASE EVENT DATE: 20210101
